FAERS Safety Report 7788280-6 (Version None)
Quarter: 2011Q3

REPORT INFORMATION
  Report Type: 
  Country: None (occurrence: None)
  Receive Date: 20110927
  Receipt Date: 20110913
  Transmission Date: 20111222
  Serious: Yes (Life-Threatening, Hospitalization, Other)
  Sender: FDA-Public Use
  Company Number: AUR-APL-2011-04310

PATIENT
  Age: 57 Year
  Sex: Female

DRUGS (20)
  1. METOPROLOL TARTRATE [Suspect]
     Indication: PRODUCT USED FOR UNKNOWN INDICATION
  2. GOLYTELY (GOLYTELY) [Concomitant]
  3. SYNTHROID [Concomitant]
  4. SIMVASTATIN [Concomitant]
  5. HYDROCODONE BITARTRATE [Concomitant]
  6. ATENOLOL [Suspect]
     Indication: PRODUCT USED FOR UNKNOWN INDICATION
     Dosage: ORAL
     Route: 048
  7. ATACAND [Suspect]
     Indication: PRODUCT USED FOR UNKNOWN INDICATION
     Dosage: 16;32 MG, 1 D, ORAL
     Route: 048
     Dates: start: 20101019
  8. ATACAND [Suspect]
     Indication: PRODUCT USED FOR UNKNOWN INDICATION
     Dosage: 16;32 MG, 1 D, ORAL
     Route: 048
     Dates: start: 20110111, end: 20110414
  9. ATACAND [Suspect]
     Indication: PRODUCT USED FOR UNKNOWN INDICATION
     Dosage: 16;32 MG, 1 D, ORAL
     Route: 048
     Dates: start: 20101109, end: 20101129
  10. LISINOPRIL [Suspect]
     Indication: PRODUCT USED FOR UNKNOWN INDICATION
     Dosage: ORAL
     Route: 048
  11. LEVOTHYROXINE SODIUM [Concomitant]
  12. OMEPRAZOLE [Concomitant]
  13. LASIX [Concomitant]
  14. RANEXA [Concomitant]
  15. ASPIRIN (ACETYLSALICYLOIC ACID) [Concomitant]
  16. NITROSTAT [Concomitant]
  17. HYDROCORTISONE ACETATE (HYDROCORTISONE ACETATE) [Concomitant]
  18. FENTANYL [Suspect]
     Indication: PRODUCT USED FOR UNKNOWN INDICATION
     Dosage: ORAL
     Route: 048
  19. LORAZEPAM [Concomitant]
  20. ANUSOL-HC (HYDROCORTISONE ACETATE) [Concomitant]

REACTIONS (12)
  - BLOOD COUNT ABNORMAL [None]
  - BRADYCARDIA [None]
  - RENAL DISORDER [None]
  - CAROTID ARTERY OCCLUSION [None]
  - DEHYDRATION [None]
  - HYPOTENSION [None]
  - DYSPNOEA [None]
  - ANGINA PECTORIS [None]
  - DRUG HYPERSENSITIVITY [None]
  - CEREBROVASCULAR ACCIDENT [None]
  - COLITIS ULCERATIVE [None]
  - LACTOSE INTOLERANCE [None]
